FAERS Safety Report 22051947 (Version 3)
Quarter: 2023Q2

REPORT INFORMATION
  Report Type: Report from Study
  Country: US (occurrence: US)
  Receive Date: 20230302
  Receipt Date: 20230530
  Transmission Date: 20230721
  Serious: Yes (Other)
  Sender: FDA-Public Use
  Company Number: US-002147023-NVSC2023US045942

PATIENT
  Sex: Male

DRUGS (1)
  1. COSENTYX [Suspect]
     Active Substance: SECUKINUMAB
     Indication: Ankylosing spondylitis
     Dosage: 150 MG, QMO (EVERY 4 WEEKS)
     Route: 058

REACTIONS (5)
  - Ankylosing spondylitis [Recovering/Resolving]
  - Inflammation [Recovering/Resolving]
  - Needle issue [Unknown]
  - Product prescribing issue [Unknown]
  - Inappropriate schedule of product administration [Recovering/Resolving]
